FAERS Safety Report 9736435 (Version 6)
Quarter: 2014Q2

REPORT INFORMATION
  Report Type: Spontaneous
  Country: US (occurrence: US)
  Receive Date: 20131206
  Receipt Date: 20140618
  Transmission Date: 20141212
  Serious: Yes (Other)
  Sender: FDA-Public Use
  Company Number: US-PFIZER INC-2013348985

PATIENT
  Age: 85 Year
  Sex: Female
  Weight: 61.22 kg

DRUGS (5)
  1. CELEBREX [Suspect]
     Indication: ARTHRITIS
     Dosage: SOMETIMES 200 MG, 1X/DAY
     Route: 048
  2. CELEBREX [Suspect]
     Dosage: SOMETIMES 100 MG, 2X/DAY
     Route: 048
  3. CELEBREX [Suspect]
     Dosage: UNK
     Dates: end: 2013
  4. CELEBREX [Suspect]
     Dosage: UNK
  5. LIPITOR [Suspect]
     Dosage: UNK

REACTIONS (6)
  - Thrombosis [Unknown]
  - Arthropathy [Unknown]
  - Pain [Not Recovered/Not Resolved]
  - Pain in extremity [Not Recovered/Not Resolved]
  - Limb discomfort [Not Recovered/Not Resolved]
  - Arthritis [Not Recovered/Not Resolved]
